FAERS Safety Report 11184897 (Version 1)
Quarter: 2015Q2

REPORT INFORMATION
  Report Type: Spontaneous
  Country: US (occurrence: None)
  Receive Date: 20150528
  Receipt Date: 20150528
  Transmission Date: 20150821
  Serious: Yes (Other)
  Sender: FDA-Public Use
  Company Number: 2014AP004466

PATIENT
  Age: 41 Year
  Sex: Female

DRUGS (6)
  1. TRAZODONE HYDROCHLORIDE (TRAZODONE) TABLET [Suspect]
     Active Substance: TRAZODONE HYDROCHLORIDE
     Indication: INTENTIONAL SELF-INJURY
     Dosage: 1.5G, ORAL
     Route: 048
  2. MARAVIROC [Concomitant]
     Active Substance: MARAVIROC
  3. RITONAVIR. [Concomitant]
     Active Substance: RITONAVIR
  4. ATAZANAVIR [Concomitant]
     Active Substance: ATAZANAVIR
  5. RALTEGRAVIR [Concomitant]
     Active Substance: RALTEGRAVIR
  6. IBUPROFEN\DIPHENHYDRAMINE [Suspect]
     Active Substance: DIPHENHYDRAMINE\IBUPROFEN
     Indication: INTENTIONAL SELF-INJURY
     Dosage: ^HANDFUL^, ORAL
     Route: 048

REACTIONS (3)
  - Intentional overdose [None]
  - Bradycardia [None]
  - Intentional self-injury [None]
